FAERS Safety Report 17197528 (Version 1)
Quarter: 2019Q4

REPORT INFORMATION
  Report Type: Spontaneous
  Country: CA (occurrence: CA)
  Receive Date: 20191224
  Receipt Date: 20191224
  Transmission Date: 20200122
  Serious: Yes (Hospitalization, Other)
  Sender: FDA-Public Use
  Company Number: CA-CELLTRION INC.-2019CA027523

PATIENT

DRUGS (12)
  1. PURINETHOL [Suspect]
     Active Substance: MERCAPTOPURINE
     Dosage: UNK
     Route: 065
  2. AZATHIOPRINE. [Concomitant]
     Active Substance: AZATHIOPRINE
     Dosage: UNK
     Route: 048
  3. TYLENOL [Concomitant]
     Active Substance: ACETAMINOPHEN
     Dosage: UNK
  4. INFLIXIMAB PFIZER (UNKNOWN) [Suspect]
     Active Substance: INFLIXIMAB
     Indication: CROHN^S DISEASE
     Dosage: 10 MG/KG, UNK
     Route: 042
  5. MINOCYCLINE HYDROCHLORIDE. [Concomitant]
     Active Substance: MINOCYCLINE HYDROCHLORIDE
     Dosage: UNK
  6. PANTOLOC [PANTOPRAZOLE] [Concomitant]
     Active Substance: PANTOPRAZOLE SODIUM
     Dosage: UNK
  7. HUMIRA [Suspect]
     Active Substance: ADALIMUMAB
     Dosage: UNK
     Route: 058
  8. SOLU-MEDROL [Concomitant]
     Active Substance: METHYLPREDNISOLONE SODIUM SUCCINATE
     Dosage: UNK
     Route: 042
  9. CALCIUM [Concomitant]
     Active Substance: CALCIUM
     Dosage: UNK
  10. PREDNISONE. [Concomitant]
     Active Substance: PREDNISONE
     Dosage: UNK
  11. FLAGYL [Suspect]
     Active Substance: METRONIDAZOLE\METRONIDAZOLE HYDROCHLORIDE
     Dosage: UNK
     Route: 065
  12. VITAMIN D NOS [Concomitant]
     Active Substance: VITAMIN D NOS
     Dosage: UNK

REACTIONS (20)
  - Abdominal distension [Unknown]
  - Crohn^s disease [Unknown]
  - Colitis [Unknown]
  - Drug intolerance [Unknown]
  - Drug ineffective [Unknown]
  - Gastrointestinal sounds abnormal [Unknown]
  - C-reactive protein increased [Unknown]
  - Generalised anxiety disorder [Unknown]
  - Hypervigilance [Unknown]
  - Irritability [Unknown]
  - Mental disorder [Unknown]
  - Chronic obstructive pulmonary disease [Unknown]
  - Intestinal stenosis [Unknown]
  - Perforation [Unknown]
  - Borderline personality disorder [Unknown]
  - Flatulence [Unknown]
  - Hidradenitis [Unknown]
  - Platelet count increased [Unknown]
  - Gastritis erosive [Unknown]
  - Gastrointestinal fistula [Unknown]
